FAERS Safety Report 23175780 (Version 2)
Quarter: 2024Q2

REPORT INFORMATION
  Report Type: Spontaneous
  Country: US (occurrence: US)
  Receive Date: 20231113
  Receipt Date: 20240418
  Transmission Date: 20240716
  Serious: No
  Sender: FDA-Public Use
  Company Number: US-BRISTOL-MYERS SQUIBB COMPANY-2023-161587

PATIENT
  Age: 64 Year
  Sex: Female

DRUGS (1)
  1. SPRYCEL [Suspect]
     Active Substance: DASATINIB
     Indication: White blood cell count increased
     Route: 048
     Dates: start: 202309

REACTIONS (4)
  - Eye swelling [Unknown]
  - Iron deficiency [Unknown]
  - Off label use [Unknown]
  - Acne [Unknown]

NARRATIVE: CASE EVENT DATE: 20230901
